FAERS Safety Report 18026978 (Version 1)
Quarter: 2020Q3

REPORT INFORMATION
  Report Type: Spontaneous
  Country: US (occurrence: US)
  Receive Date: 20200715
  Receipt Date: 20200715
  Transmission Date: 20201103
  Serious: Yes (Other)
  Sender: FDA-Public Use
  Company Number: US-PURDUE-USA-2020-0155581

PATIENT
  Sex: Male

DRUGS (6)
  1. ATRIPLA [Concomitant]
     Active Substance: EFAVIRENZ\EMTRICITABINE\TENOFOVIR DISOPROXIL FUMARATE
     Indication: HIV INFECTION
     Dosage: UNKNOWN
     Route: 065
  2. OXYCODONE HYDROCHLORIDE (SIMILAR TO NDA 22?272) [Suspect]
     Active Substance: OXYCODONE HYDROCHLORIDE
     Indication: EAR PAIN
     Dosage: UNKNOWN
     Route: 048
  3. AURALGAN                           /00058501/ [Concomitant]
     Indication: EAR PAIN
     Dosage: UNKNOWN
     Route: 065
  4. HYDROCODONE BITARTRATE AND ACETAMINOPHEN [Suspect]
     Active Substance: ACETAMINOPHEN\HYDROCODONE BITARTRATE
     Indication: PRODUCT USED FOR UNKNOWN INDICATION
     Dosage: UNKNOWN
     Route: 048
  5. VICODIN [Suspect]
     Active Substance: ACETAMINOPHEN\HYDROCODONE BITARTRATE
     Indication: EAR PAIN
     Dosage: UNKNOWN
     Route: 065
  6. TRAMADOL. [Suspect]
     Active Substance: TRAMADOL
     Indication: EAR PAIN
     Dosage: UNKNOWN
     Route: 065

REACTIONS (44)
  - Gastrointestinal disorder [Unknown]
  - Migraine [Unknown]
  - Back pain [Unknown]
  - Eczema [Unknown]
  - Haemorrhoids [Unknown]
  - Deafness bilateral [Not Recovered/Not Resolved]
  - Major depression [Unknown]
  - Night sweats [Unknown]
  - Middle ear effusion [Unknown]
  - Blood cholesterol increased [Unknown]
  - Haematuria [Unknown]
  - Blood pressure increased [Unknown]
  - Bursitis [Unknown]
  - Blood lactic acid increased [Unknown]
  - Diarrhoea [Unknown]
  - Depression [Unknown]
  - Social problem [Unknown]
  - Rash [Unknown]
  - Skin discolouration [Unknown]
  - Anal fistula [Unknown]
  - Fatigue [Unknown]
  - Nightmare [Unknown]
  - Osteoarthritis [Unknown]
  - Attention deficit hyperactivity disorder [Unknown]
  - Drug dependence [Unknown]
  - Vomiting [Unknown]
  - Anxiety [Unknown]
  - Arthralgia [Unknown]
  - Influenza like illness [Unknown]
  - Epistaxis [Unknown]
  - Haematochezia [Unknown]
  - Erectile dysfunction [Unknown]
  - Vertigo positional [Unknown]
  - Pain [Unknown]
  - Tinnitus [Unknown]
  - Mood altered [Unknown]
  - Mental disorder [Unknown]
  - Protein total increased [Unknown]
  - Tremor [Unknown]
  - Tenderness [Unknown]
  - Vertigo [Unknown]
  - Insomnia [Unknown]
  - Amnesia [Unknown]
  - Temporomandibular joint syndrome [Unknown]
